FAERS Safety Report 7801347-9 (Version None)
Quarter: 2011Q4

REPORT INFORMATION
  Report Type: 
  Country: None (occurrence: None)
  Receive Date: 20111007
  Receipt Date: 20111003
  Transmission Date: 20120403
  Serious: No
  Sender: FDA-Public Use
  Company Number: US-PFIZER INC-2011236271

PATIENT
  Sex: Female

DRUGS (3)
  1. AROMASIN [Suspect]
     Dosage: UNK
  2. TAMOXIFEN CITRATE [Suspect]
     Indication: BREAST CANCER
     Dosage: 20 MG, 1X/DAY
     Route: 048
     Dates: start: 20110916
  3. ARIMIDEX [Suspect]
     Dosage: UNK

REACTIONS (2)
  - BONE PAIN [None]
  - PARAESTHESIA [None]
